FAERS Safety Report 12479703 (Version 1)
Quarter: 2016Q2

REPORT INFORMATION
  Report Type: Spontaneous
  Country: TR (occurrence: TR)
  Receive Date: 20160620
  Receipt Date: 20160620
  Transmission Date: 20160815
  Serious: Yes (Hospitalization)
  Sender: FDA-Public Use
  Company Number: TR-ALEMBIC PHARMACUETICALS LIMITED-2016SCAL000460

PATIENT

DRUGS (3)
  1. ATOMOXETINE [Interacting]
     Active Substance: ATOMOXETINE
     Indication: ATTENTION DEFICIT/HYPERACTIVITY DISORDER
     Dosage: 0.5 MG/KG, QD
  2. ATOMOXETINE [Interacting]
     Active Substance: ATOMOXETINE
     Dosage: 1.2 MG/KG, QD, HIGH DOSE
  3. ARIPIPRAZOLE. [Suspect]
     Active Substance: ARIPIPRAZOLE
     Indication: ATTENTION DEFICIT/HYPERACTIVITY DISORDER
     Dosage: 5 MG/KG, QD, LOW DOSE

REACTIONS (4)
  - Drug interaction [Unknown]
  - Irritability [Unknown]
  - Off label use [Unknown]
  - Dystonia [Recovered/Resolved]
